FAERS Safety Report 5953663-3 (Version None)
Quarter: 2008Q4

REPORT INFORMATION
  Report Type: 
  Country: None (occurrence: None)
  Receive Date: 20081114
  Receipt Date: 20081110
  Transmission Date: 20090506
  Serious: Yes (Other)
  Sender: FDA-Public Use
  Company Number: B0545821A

PATIENT
  Age: 60 Year
  Sex: Male

DRUGS (4)
  1. AVANDIA [Suspect]
     Dosage: 4MG PER DAY
     Route: 048
     Dates: start: 20080915, end: 20081027
  2. METFORMIN HCL [Concomitant]
     Dosage: 1000MG THREE TIMES PER DAY
  3. GLYBURIDE [Concomitant]
     Dosage: 5MG THREE TIMES PER DAY
  4. ENALAPRIL MALEATE [Concomitant]
     Dosage: 20MG PER DAY

REACTIONS (1)
  - LICHEN PLANUS [None]
